FAERS Safety Report 15688112 (Version 2)
Quarter: 2019Q2

REPORT INFORMATION
  Report Type: Spontaneous
  Country: US (occurrence: US)
  Receive Date: 20181205
  Receipt Date: 20190513
  Transmission Date: 20190711
  Serious: Yes (Other)
  Sender: FDA-Public Use
  Company Number: US-ASTRAZENECA-2018SF55805

PATIENT
  Sex: Male

DRUGS (21)
  1. GABAPENTIN. [Concomitant]
     Active Substance: GABAPENTIN
  2. PANTOPRAZOLE [Suspect]
     Active Substance: PANTOPRAZOLE
     Route: 048
     Dates: start: 201310
  3. METOPROLOL. [Concomitant]
     Active Substance: METOPROLOL
  4. LANSOPRAZOLE. [Concomitant]
     Active Substance: LANSOPRAZOLE
  5. LOSARTAN. [Concomitant]
     Active Substance: LOSARTAN
  6. PANTOPRAZOLE [Suspect]
     Active Substance: PANTOPRAZOLE
     Route: 048
     Dates: start: 201408
  7. VICTOZA [Concomitant]
     Active Substance: LIRAGLUTIDE
  8. ATORVASTATIN [Concomitant]
     Active Substance: ATORVASTATIN
  9. CYCLOBENZAPRINE. [Concomitant]
     Active Substance: CYCLOBENZAPRINE
  10. MYLANTA [Concomitant]
     Active Substance: ALUMINUM HYDROXIDE\DIMETHICONE\MAGNESIUM HYDROXIDE
  11. TUMS [Concomitant]
     Active Substance: CALCIUM CARBONATE
  12. TAMSULOSIN [Concomitant]
     Active Substance: TAMSULOSIN
  13. FLUTICASONE. [Concomitant]
     Active Substance: FLUTICASONE
  14. METHOCARBAMOL. [Concomitant]
     Active Substance: METHOCARBAMOL
  15. NEXIUM [Suspect]
     Active Substance: ESOMEPRAZOLE MAGNESIUM
     Route: 048
     Dates: start: 2009, end: 2013
  16. ZANTAC [Concomitant]
     Active Substance: RANITIDINE HYDROCHLORIDE
  17. CLONIDINE. [Concomitant]
     Active Substance: CLONIDINE
  18. PEPCID [Concomitant]
     Active Substance: FAMOTIDINE
  19. GLIPIZIDE. [Concomitant]
     Active Substance: GLIPIZIDE
  20. ASPIRIN. [Concomitant]
     Active Substance: ASPIRIN
  21. GAVISCON [Concomitant]
     Active Substance: ALUMINUM HYDROXIDE\MAGNESIUM CARBONATE

REACTIONS (1)
  - Chronic kidney disease [Not Recovered/Not Resolved]

NARRATIVE: CASE EVENT DATE: 201706
